FAERS Safety Report 4588215-3 (Version None)
Quarter: 2005Q1

REPORT INFORMATION
  Report Type: 
  Country: None (occurrence: None)
  Receive Date: 20050221
  Receipt Date: 20050208
  Transmission Date: 20050727
  Serious: Yes (Other)
  Sender: FDA-Public Use
  Company Number: IT-ROCHE-394857

PATIENT
  Age: 17 Year
  Sex: Male

DRUGS (4)
  1. ACCUTANE [Suspect]
     Indication: ACNE CYSTIC
     Route: 048
  2. ACCUTANE [Suspect]
     Dosage: INCREASED PROGRESSIVELY BY 0.1 MG/KG EVERY 10 DAYS.
     Route: 048
  3. ACCUTANE [Suspect]
     Route: 048
     Dates: start: 19991115
  4. ACCUTANE [Suspect]
     Dosage: TOTAL CUMULATIVE DOSE FOR 7 MONTHS THERAPY.
     Route: 048

REACTIONS (3)
  - HAEMATOMA [None]
  - HAEMOPHILIA [None]
  - TREATMENT NONCOMPLIANCE [None]
